FAERS Safety Report 11370562 (Version 5)
Quarter: 2015Q4

REPORT INFORMATION
  Report Type: Report from Study
  Country: US (occurrence: US)
  Receive Date: 20150812
  Receipt Date: 20151120
  Transmission Date: 20160304
  Serious: Yes (Hospitalization)
  Sender: FDA-Public Use
  Company Number: US-BIOGENIDEC-2015BI110767

PATIENT
  Age: 58 Year
  Sex: Male

DRUGS (3)
  1. TYSABRI [Suspect]
     Active Substance: NATALIZUMAB
     Indication: MULTIPLE SCLEROSIS
     Route: 042
  2. TYSABRI [Suspect]
     Active Substance: NATALIZUMAB
     Indication: MULTIPLE SCLEROSIS
     Route: 042
     Dates: start: 201310
  3. TYSABRI [Suspect]
     Active Substance: NATALIZUMAB
     Indication: MULTIPLE SCLEROSIS
     Route: 042
     Dates: start: 20131104, end: 20150804

REACTIONS (10)
  - Osteomyelitis [Recovered/Resolved]
  - Urosepsis [Not Recovered/Not Resolved]
  - Asthenia [Unknown]
  - Infected skin ulcer [Unknown]
  - Chills [Unknown]
  - Sepsis [Recovered/Resolved]
  - Skin ulcer [Recovered/Resolved]
  - Pyrexia [Unknown]
  - Decubitus ulcer [Unknown]
  - Bacteraemia [Unknown]

NARRATIVE: CASE EVENT DATE: 201508
